FAERS Safety Report 22340799 (Version 1)
Quarter: 2023Q2

REPORT INFORMATION
  Report Type: Report from Study
  Country: US (occurrence: US)
  Receive Date: 20230518
  Receipt Date: 20230518
  Transmission Date: 20230722
  Serious: Yes (Other)
  Sender: FDA-Public Use
  Company Number: US-JAZZ PHARMACEUTICALS-2023-US-006162

PATIENT
  Sex: Female

DRUGS (3)
  1. XYREM [Suspect]
     Active Substance: SODIUM OXYBATE
     Indication: Narcolepsy
     Dosage: UNK
  2. XYREM [Suspect]
     Active Substance: SODIUM OXYBATE
     Indication: Cataplexy
  3. XYREM [Suspect]
     Active Substance: SODIUM OXYBATE
     Indication: Somnolence

REACTIONS (8)
  - Coeliac disease [Unknown]
  - Thyroid cancer [Unknown]
  - Asthma [Not Recovered/Not Resolved]
  - Obstructive sleep apnoea syndrome [Unknown]
  - Polycystic ovaries [Unknown]
  - Arthritis [Unknown]
  - Anxiety [Unknown]
  - Depression [Unknown]
